FAERS Safety Report 4524318-7 (Version None)
Quarter: 2004Q4

REPORT INFORMATION
  Report Type: 
  Country: None (occurrence: None)
  Receive Date: 20041119
  Receipt Date: 20041019
  Transmission Date: 20050328
  Serious: No
  Sender: FDA-Public Use
  Company Number: 209798

PATIENT
  Age: 52 Year
  Sex: Male

DRUGS (1)
  1. RAPTIVA [Suspect]
     Indication: PSORIASIS
     Dates: start: 20040301

REACTIONS (1)
  - PSORIASIS [None]
